FAERS Safety Report 18553963 (Version 1)
Quarter: 2020Q4

REPORT INFORMATION
  Report Type: Spontaneous
  Country: US (occurrence: US)
  Receive Date: 20201127
  Receipt Date: 20201127
  Transmission Date: 20210114
  Serious: No
  Sender: FDA-Public Use
  Company Number: US-SA-2020SA340124

PATIENT

DRUGS (1)
  1. DUPIXENT [Suspect]
     Active Substance: DUPILUMAB
     Indication: PSORIASIS
     Dosage: 300 MG, QOW
     Route: 058
     Dates: start: 20201006

REACTIONS (5)
  - Eyelids pruritus [Unknown]
  - Eye irritation [Recovering/Resolving]
  - Ocular hyperaemia [Unknown]
  - Product use in unapproved indication [Unknown]
  - Eye pain [Unknown]

NARRATIVE: CASE EVENT DATE: 2020
